FAERS Safety Report 5120182-6 (Version None)
Quarter: 2006Q3

REPORT INFORMATION
  Report Type: 
  Country: None (occurrence: None)
  Receive Date: 20060928
  Receipt Date: 20060920
  Transmission Date: 20061208
  Serious: Yes (Hospitalization)
  Sender: FDA-Public Use
  Company Number: 230096

PATIENT
  Age: 65 Year
  Sex: Male
  Weight: 73 kg

DRUGS (4)
  1. RITUXIMAB (RITUXIMAB) CONC FOR SOLUTION FOR INFUSION [Suspect]
     Indication: NON-HODGKIN'S LYMPHOMA
     Dosage: 680 MG, QD, INTRAVENOUS
     Route: 042
     Dates: start: 20051128
  2. VINCRISTINE [Suspect]
     Indication: NON-HODGKIN'S LYMPHOMA
     Dosage: 2 MG, INTRAVENOUS
     Route: 042
     Dates: start: 20051128
  3. PIRARUBICIN HYDROCHLORIDE (PIRARUBICIN) [Concomitant]
  4. CYCLOPHOSPHAMIDE [Concomitant]

REACTIONS (2)
  - DEEP VEIN THROMBOSIS [None]
  - VENA CAVA THROMBOSIS [None]
